FAERS Safety Report 8590981 (Version 3)
Quarter: 2013Q4

REPORT INFORMATION
  Report Type: Spontaneous
  Country: US (occurrence: US)
  Receive Date: 20120601
  Receipt Date: 20131125
  Transmission Date: 20140711
  Serious: Yes (Other)
  Sender: FDA-Public Use
  Company Number: US-PFIZER INC-2012129756

PATIENT
  Age: 60 Year
  Sex: Female
  Weight: 71.2 kg

DRUGS (6)
  1. LYRICA [Suspect]
     Indication: DIABETIC NEUROPATHY
     Dosage: 75 MG, 2X/DAY
     Route: 048
     Dates: start: 2005, end: 2005
  2. LYRICA [Suspect]
     Indication: NEURALGIA
     Dosage: 75 MG, DAILY
     Route: 048
     Dates: start: 2005, end: 201205
  3. LYRICA [Suspect]
     Dosage: 75 MG, 1X/DAY
     Route: 048
  4. AMOXICILLIN [Suspect]
     Indication: TOOTHACHE
     Dosage: 500 MG, 3X/DAY
     Dates: start: 2012, end: 2012
  5. METOPROLOL [Concomitant]
     Indication: HYPERTENSION
     Dosage: 100 MG, 2X/DAY
  6. LISINOPRIL [Concomitant]
     Indication: HYPERTENSION
     Dosage: 40 MG, DAILY

REACTIONS (6)
  - Tooth infection [Unknown]
  - Toothache [Unknown]
  - Gait disturbance [Unknown]
  - Pain in extremity [Unknown]
  - Erythema [Unknown]
  - Burning sensation [Unknown]
